FAERS Safety Report 22919159 (Version 3)
Quarter: 2024Q2

REPORT INFORMATION
  Report Type: Report from Study
  Country: US (occurrence: US)
  Receive Date: 20230907
  Receipt Date: 20240621
  Transmission Date: 20240715
  Serious: No
  Sender: FDA-Public Use
  Company Number: US-ACADIA PHARMACEUTICALS INC.-ACA-2023-PIM-003523

PATIENT
  Sex: Male

DRUGS (18)
  1. NUPLAZID [Suspect]
     Active Substance: PIMAVANSERIN TARTRATE
     Indication: Parkinson^s disease psychosis
     Dosage: 34 MILLIGRAM, QD
     Route: 048
     Dates: start: 20230612
  2. NUPLAZID [Suspect]
     Active Substance: PIMAVANSERIN TARTRATE
     Indication: Parkinson^s disease
     Dosage: 34 MILLIGRAM, QD
     Route: 048
     Dates: start: 202306
  3. CANNABIDIOL\HERBALS [Concomitant]
     Active Substance: CANNABIDIOL\HERBALS
  4. INCRUSE ELLIPTA [Concomitant]
     Active Substance: UMECLIDINIUM BROMIDE
  5. CARBIDOPA [Concomitant]
     Active Substance: CARBIDOPA
  6. ALLOPURINOL [Concomitant]
     Active Substance: ALLOPURINOL
  7. TYLENOL [Concomitant]
     Active Substance: ACETAMINOPHEN
  8. VITAMIN D3 [Concomitant]
     Active Substance: CHOLECALCIFEROL
  9. OXYBUTYNIN [Concomitant]
     Active Substance: OXYBUTYNIN\OXYBUTYNIN CHLORIDE
  10. CELECOXIB [Concomitant]
     Active Substance: CELECOXIB
  11. RASAGILINE MESYLATE [Concomitant]
     Active Substance: RASAGILINE MESYLATE
  12. PRAVASTATIN [Concomitant]
     Active Substance: PRAVASTATIN
  13. AMLODIPINE [Concomitant]
     Active Substance: AMLODIPINE BESYLATE
  14. FISH OIL [Concomitant]
     Active Substance: FISH OIL
  15. VITAMIN B12 [Concomitant]
     Active Substance: CYANOCOBALAMIN
  16. BENAZEPRIL [Concomitant]
     Active Substance: BENAZEPRIL HYDROCHLORIDE
  17. CARBIDOPA LEVODOPA [Concomitant]
     Active Substance: CARBIDOPA\LEVODOPA
  18. CELECOXIB [Concomitant]
     Active Substance: CELECOXIB

REACTIONS (8)
  - Emotional distress [Recovering/Resolving]
  - Anxiety [Recovering/Resolving]
  - Arthritis [Not Recovered/Not Resolved]
  - Hallucination [Unknown]
  - Confusional state [Unknown]
  - Therapeutic product effect decreased [Unknown]
  - Hallucination [Recovering/Resolving]
  - Hallucination [Not Recovered/Not Resolved]
